FAERS Safety Report 15504212 (Version 1)
Quarter: 2018Q4

REPORT INFORMATION
  Report Type: Spontaneous
  Country: US (occurrence: US)
  Receive Date: 20181009
  Receipt Date: 20181009
  Transmission Date: 20190205
  Serious: Yes (Other)
  Sender: FDA-Public Use
  Company Number: None

PATIENT
  Age: 28 Year
  Sex: Female
  Weight: 63 kg

DRUGS (3)
  1. MONTELUKAST SODIUM TABLETS 10 MG [Suspect]
     Active Substance: MONTELUKAST SODIUM
     Indication: ASTHMA
     Dosage: ?          QUANTITY:30 TABLET(S);?
     Route: 048
     Dates: start: 20180905, end: 20180918
  2. INHALER [Concomitant]
     Active Substance: UNSPECIFIED INGREDIENT
  3. MONTELUKAST SODIUM TABLETS 10 MG [Suspect]
     Active Substance: MONTELUKAST SODIUM
     Indication: MULTIPLE ALLERGIES
     Dosage: ?          QUANTITY:30 TABLET(S);?
     Route: 048
     Dates: start: 20180905, end: 20180918

REACTIONS (15)
  - Rash [None]
  - Discomfort [None]
  - Drug ineffective [None]
  - Bedridden [None]
  - Fatigue [None]
  - Abdominal distension [None]
  - Eczema [None]
  - Middle insomnia [None]
  - Migraine [None]
  - Dizziness [None]
  - Presyncope [None]
  - Diarrhoea [None]
  - Abdominal discomfort [None]
  - Dyspnoea [None]
  - Psoriasis [None]

NARRATIVE: CASE EVENT DATE: 20180911
